FAERS Safety Report 21120460 (Version 1)
Quarter: 2022Q3

REPORT INFORMATION
  Report Type: Spontaneous
  Country: US (occurrence: None)
  Receive Date: 20220722
  Receipt Date: 20220722
  Transmission Date: 20221027
  Serious: Yes (Hospitalization)
  Sender: FDA-Public Use
  Company Number: None

PATIENT
  Age: 73 Year
  Sex: Male
  Weight: 70.5 kg

DRUGS (2)
  1. TEMOZOLOMIDE [Suspect]
     Active Substance: TEMOZOLOMIDE
     Dates: end: 20220621
  2. TEMOZOLOMIDE [Suspect]
     Active Substance: TEMOZOLOMIDE

REACTIONS (9)
  - Muscular weakness [None]
  - Fall [None]
  - Paralysis [None]
  - Decreased appetite [None]
  - Nausea [None]
  - Asthenia [None]
  - Vasogenic cerebral oedema [None]
  - Cerebral cyst [None]
  - Condition aggravated [None]

NARRATIVE: CASE EVENT DATE: 20220710
